FAERS Safety Report 4748084-5 (Version None)
Quarter: 2005Q3

REPORT INFORMATION
  Report Type: 
  Country: None (occurrence: None)
  Receive Date: 20050818
  Receipt Date: 20050810
  Transmission Date: 20060218
  Serious: Yes (Hospitalization)
  Sender: FDA-Public Use
  Company Number: GB-MERCK-0508GBR00072

PATIENT
  Age: 81 Year
  Sex: Female

DRUGS (9)
  1. TIMOPTIC [Suspect]
     Indication: GLAUCOMA
     Route: 061
     Dates: end: 20050721
  2. DILTIAZEM HYDROCHLORIDE [Suspect]
     Indication: HYPERTENSION
     Route: 048
     Dates: end: 20050721
  3. CANDESARTAN [Concomitant]
     Indication: BLOOD PRESSURE
     Route: 048
  4. SIMVASTATIN [Concomitant]
     Indication: BLOOD CHOLESTEROL INCREASED
     Route: 048
  5. ASPIRIN [Concomitant]
     Indication: BLOOD PRESSURE
     Route: 048
  6. ISOSORBIDE MONONITRATE [Concomitant]
     Indication: BLOOD PRESSURE
     Route: 048
  7. BRINZOLAMIDE [Concomitant]
     Indication: GLAUCOMA
     Route: 061
  8. CYCLOPENTOLATE HYDROCHLORIDE [Concomitant]
     Indication: GLAUCOMA
     Route: 061
  9. TRAVOPROST [Concomitant]
     Indication: GLAUCOMA
     Route: 061

REACTIONS (1)
  - BRADYCARDIA [None]
